FAERS Safety Report 8102362-0 (Version None)
Quarter: 2012Q1

REPORT INFORMATION
  Report Type: 
  Country: None (occurrence: None)
  Receive Date: 20120201
  Receipt Date: 20120126
  Transmission Date: 20120608
  Serious: No
  Sender: FDA-Public Use
  Company Number: US-PFIZER INC-2012023355

PATIENT
  Age: 55 Year
  Sex: Male
  Weight: 77.098 kg

DRUGS (1)
  1. ADVIL PM [Suspect]
     Indication: MUSCLE DISORDER
     Dosage: 400 MG, DAILY
     Route: 048
     Dates: start: 20120101, end: 20120101

REACTIONS (2)
  - PRURITUS [None]
  - ACCIDENTAL EXPOSURE [None]
